FAERS Safety Report 6437531-9 (Version None)
Quarter: 2009Q4

REPORT INFORMATION
  Report Type: 
  Country: None (occurrence: None)
  Receive Date: 20091112
  Receipt Date: 20091107
  Transmission Date: 20100525
  Serious: Yes (Hospitalization)
  Sender: FDA-Public Use
  Company Number: US-PFIZER INC-2009278558

PATIENT
  Sex: Female
  Weight: 74.376 kg

DRUGS (11)
  1. AMLODIPINE BESYLATE [Suspect]
     Dosage: 5 MG/20 MG
     Dates: start: 20080625, end: 20081119
  2. ATACAND [Suspect]
  3. ASPIRIN [Concomitant]
     Dosage: UNK
  4. HYDROCHLOROTHIAZIDE [Concomitant]
     Dosage: UNK
  5. NITROGLYCERIN [Concomitant]
     Dosage: UNK
  6. ZYRTEC [Concomitant]
     Dosage: UNK
  7. TRAVATAN [Concomitant]
     Dosage: UNK
  8. COMBIVENT [Concomitant]
  9. TORSEMIDE [Concomitant]
     Dosage: UNK
  10. LOVASTATIN [Concomitant]
     Dosage: UNK
  11. VITAMIN B-12 [Concomitant]

REACTIONS (8)
  - ATELECTASIS [None]
  - CARDIAC FAILURE CONGESTIVE [None]
  - CARDIOMEGALY [None]
  - HEART RATE INCREASED [None]
  - OEDEMA [None]
  - PLEURAL EFFUSION [None]
  - PULMONARY CONGESTION [None]
  - STREPTOCOCCAL INFECTION [None]
